FAERS Safety Report 7918437-2 (Version None)
Quarter: 2011Q4

REPORT INFORMATION
  Report Type: 
  Country: None (occurrence: None)
  Receive Date: 20111116
  Receipt Date: 20111110
  Transmission Date: 20120403
  Serious: Yes (Other)
  Sender: FDA-Public Use
  Company Number: JP-PFIZER INC-2011091148

PATIENT
  Age: 80 Year
  Sex: Male
  Weight: 65 kg

DRUGS (4)
  1. TEMSIROLIMUS [Suspect]
     Indication: RENAL CELL CARCINOMA
     Dosage: 25 MG, WEEKLY
     Route: 042
     Dates: start: 20101018, end: 20101025
  2. TEMSIROLIMUS [Suspect]
     Dosage: 25 MG, WEEKLY
     Route: 042
     Dates: start: 20101108, end: 20101115
  3. TEMSIROLIMUS [Suspect]
     Dosage: 25 MG, WEEKLY
     Route: 042
     Dates: start: 20101129, end: 20101206
  4. TEMSIROLIMUS [Suspect]
     Dosage: 25 MG, WEEKLY
     Route: 042
     Dates: start: 20101220, end: 20101220

REACTIONS (1)
  - ERYTHEMA MULTIFORME [None]
